FAERS Safety Report 25777917 (Version 2)
Quarter: 2025Q4

REPORT INFORMATION
  Report Type: Report from Study
  Country: US (occurrence: US)
  Receive Date: 20250909
  Receipt Date: 20251009
  Transmission Date: 20260117
  Serious: Yes (Life-Threatening, Hospitalization, Other)
  Sender: UNITED THERAPEUTICS
  Company Number: US-UNITED THERAPEUTICS-UNT-2025-030754

PATIENT
  Age: 3 Year
  Sex: Female
  Weight: 13.2 kg

DRUGS (23)
  1. UNITUXIN [Suspect]
     Active Substance: DINUTUXIMAB
     Indication: Neuroblastoma
     Dosage: UNK, CYCLICAL (CYCLE 1)
     Route: 041
  2. UNITUXIN [Suspect]
     Active Substance: DINUTUXIMAB
     Dosage: 28.5 MG (TOTAL DOSE], CYCLICAL (CYCLE 2)
     Route: 041
     Dates: start: 20250818, end: 20250820
  3. LEUKINE [Suspect]
     Active Substance: SARGRAMOSTIM
     Indication: Neuroblastoma
     Dosage: UNK, CYCLICAL (CYCLE 1)
  4. LEUKINE [Suspect]
     Active Substance: SARGRAMOSTIM
     Dosage: 700 ?G (TOTAL DOSE), CYCLICAL (CYCLE 2)
     Dates: start: 20250815, end: 20250820
  5. ISOTRETINOIN [Concomitant]
     Active Substance: ISOTRETINOIN
     Indication: Neuroblastoma
     Dosage: UNK
     Dates: start: 20240912, end: 20241228
  6. ISOTRETINOIN [Concomitant]
     Active Substance: ISOTRETINOIN
     Dosage: UNK
     Dates: start: 20250718, end: 20250907
  7. THIOTEPA [Concomitant]
     Active Substance: THIOTEPA
     Indication: Neuroblastoma
     Dosage: UNK
  8. CYCLOPHOSPHAMIDE [Concomitant]
     Active Substance: CYCLOPHOSPHAMIDE
     Indication: Neuroblastoma
     Dosage: UNK
     Dates: start: 20240912, end: 20241228
  9. CYCLOPHOSPHAMIDE [Concomitant]
     Active Substance: CYCLOPHOSPHAMIDE
     Dosage: UNK
  10. MESNA [Concomitant]
     Active Substance: MESNA
     Indication: Neuroblastoma
     Dosage: UNK
     Dates: start: 20240912, end: 20241228
  11. MESNA [Concomitant]
     Active Substance: MESNA
     Dosage: UNK
  12. MELPHALAN [Concomitant]
     Active Substance: MELPHALAN
     Indication: Neuroblastoma
     Dosage: UNK
  13. ETOPOSIDE [Concomitant]
     Active Substance: ETOPOSIDE
     Indication: Neuroblastoma
     Dosage: UNK
     Dates: start: 20240912, end: 20241228
  14. ETOPOSIDE [Concomitant]
     Active Substance: ETOPOSIDE
     Dosage: UNK
  15. CARBOPLATIN [Concomitant]
     Active Substance: CARBOPLATIN
     Indication: Neuroblastoma
     Dosage: UNK
  16. GRANULOCYTE-MACROPHAGE COLONY-STIMULATING FACTOR [Concomitant]
     Active Substance: GRANULOCYTE-MACROPHAGE COLONY-STIMULATING FACTOR
     Indication: Neuroblastoma
     Dosage: UNK
     Dates: start: 20240912, end: 20241228
  17. GRANULOCYTE-MACROPHAGE COLONY-STIMULATING FACTOR [Concomitant]
     Active Substance: GRANULOCYTE-MACROPHAGE COLONY-STIMULATING FACTOR
     Dosage: UNK
  18. GRANULOCYTE-MACROPHAGE COLONY-STIMULATING FACTOR [Concomitant]
     Active Substance: GRANULOCYTE-MACROPHAGE COLONY-STIMULATING FACTOR
     Dosage: UNK
     Dates: start: 20250718, end: 20250820
  19. PEGFILGRASTIM [Concomitant]
     Active Substance: PEGFILGRASTIM
     Indication: Neuroblastoma
     Dosage: UNK
     Dates: start: 20240912, end: 20241228
  20. TOPOTECAN [Concomitant]
     Active Substance: TOPOTECAN HYDROCHLORIDE
     Indication: Neuroblastoma
     Dosage: UNK
     Dates: start: 20240912, end: 20241228
  21. VINCRISTINE [Concomitant]
     Active Substance: VINCRISTINE
     Indication: Neuroblastoma
     Dosage: UNK
     Dates: start: 20240912, end: 20241228
  22. DEXRAZOXANE [Concomitant]
     Active Substance: DEXRAZOXANE
     Indication: Neuroblastoma
     Dosage: UNK
     Dates: start: 20240912, end: 20241228
  23. DOXORUBICIN [Concomitant]
     Active Substance: DOXORUBICIN
     Indication: Neuroblastoma
     Dosage: UNK
     Dates: start: 20240912, end: 20241228

REACTIONS (3)
  - Pulmonary oedema [Recovering/Resolving]
  - Pulmonary haemorrhage [Recovering/Resolving]
  - Respiratory failure [Recovering/Resolving]

NARRATIVE: CASE EVENT DATE: 20250820
